FAERS Safety Report 14582848 (Version 3)
Quarter: 2018Q1

REPORT INFORMATION
  Report Type: Report from Study
  Country: DE (occurrence: DE)
  Receive Date: 20180228
  Receipt Date: 20180315
  Transmission Date: 20180509
  Serious: Yes (Death, Life-Threatening, Hospitalization)
  Sender: FDA-Public Use
  Company Number: DE-PFIZER INC-2018082142

PATIENT
  Age: 53 Year
  Sex: Male
  Weight: 90 kg

DRUGS (5)
  1. PALBOCICLIB [Suspect]
     Active Substance: PALBOCICLIB
     Indication: CHORDOMA
     Dosage: 125 MG, DAILY ON DAYS 1-21 IN A 28-DAY-CYCLE
     Route: 048
     Dates: start: 20180201, end: 20180221
  2. DEXAMETHASONE. [Concomitant]
     Active Substance: DEXAMETHASONE
     Indication: FATIGUE
  3. DEXAMETHASONE. [Concomitant]
     Active Substance: DEXAMETHASONE
     Indication: MUSCULAR WEAKNESS
  4. DEXAMETHASONE. [Concomitant]
     Active Substance: DEXAMETHASONE
     Indication: PARALYSIS
     Dosage: 2 MG, UNK
     Dates: start: 20180115, end: 20180222
  5. DEXAMETHASONE. [Concomitant]
     Active Substance: DEXAMETHASONE
     Indication: PAIN

REACTIONS (6)
  - Hypoaesthesia [Not Recovered/Not Resolved]
  - Sepsis [Fatal]
  - Febrile neutropenia [Fatal]
  - Tumour pain [Not Recovered/Not Resolved]
  - Diplegia [Not Recovered/Not Resolved]
  - Prerenal failure [Not Recovered/Not Resolved]

NARRATIVE: CASE EVENT DATE: 20180221
